FAERS Safety Report 4712674-6 (Version None)
Quarter: 2005Q3

REPORT INFORMATION
  Report Type: 
  Country: None (occurrence: None)
  Receive Date: 20050706
  Receipt Date: 20050407
  Transmission Date: 20060218
  Serious: Yes (Hospitalization)
  Sender: FDA-Public Use
  Company Number: US-2005-005120

PATIENT
  Sex: Male

DRUGS (1)
  1. CAMPATH [Suspect]
     Dosage: 3 MG, 1 DOSE
     Dates: start: 20050401, end: 20050401

REACTIONS (1)
  - TUMOUR LYSIS SYNDROME [None]
